FAERS Safety Report 11668634 (Version 1)
Quarter: 2015Q4

REPORT INFORMATION
  Report Type: Spontaneous
  Country: US (occurrence: US)
  Receive Date: 20151027
  Receipt Date: 20151027
  Transmission Date: 20160304
  Serious: No
  Sender: FDA-Public Use
  Company Number: US-ELI_LILLY_AND_COMPANY-US201003006872

PATIENT
  Sex: Male

DRUGS (1)
  1. FORTEO [Suspect]
     Active Substance: TERIPARATIDE

REACTIONS (7)
  - Lethargy [Unknown]
  - Bruxism [Unknown]
  - Influenza like illness [Unknown]
  - Muscle rigidity [Unknown]
  - Dizziness [Unknown]
  - Diarrhoea [Unknown]
  - Arthralgia [Unknown]
